FAERS Safety Report 5326533-1 (Version None)
Quarter: 2007Q2

REPORT INFORMATION
  Report Type: 
  Country: None (occurrence: None)
  Receive Date: 20070516
  Receipt Date: 20070509
  Transmission Date: 20071010
  Serious: Yes (Hospitalization, Other)
  Sender: FDA-Public Use
  Company Number: PHEH2007US04645

PATIENT
  Age: 52 Year
  Sex: Female

DRUGS (9)
  1. ZELNORM [Suspect]
     Indication: IRRITABLE BOWEL SYNDROME
     Route: 048
     Dates: start: 20061201, end: 20070201
  2. ACTOS ^LILLY^ [Concomitant]
     Indication: DIABETES MELLITUS
  3. ALLOPURINOL [Concomitant]
  4. PROZAC [Concomitant]
  5. LASIX [Concomitant]
  6. NEXIUM [Concomitant]
  7. PROVIGIL [Concomitant]
  8. SYNTHROID [Concomitant]
  9. TOPAMAX [Concomitant]

REACTIONS (9)
  - CARDIAC DISORDER [None]
  - CARDIAC VALVE DISEASE [None]
  - CATHETERISATION CARDIAC ABNORMAL [None]
  - FEELING ABNORMAL [None]
  - HEART RATE DECREASED [None]
  - LOSS OF CONSCIOUSNESS [None]
  - MYOCARDIAL INFARCTION [None]
  - OXYGEN SATURATION DECREASED [None]
  - SYNCOPE [None]
